FAERS Safety Report 21702864 (Version 6)
Quarter: 2023Q1

REPORT INFORMATION
  Report Type: Spontaneous
  Country: CO (occurrence: CO)
  Receive Date: 20221209
  Receipt Date: 20230327
  Transmission Date: 20230417
  Serious: Yes (Disabling, Other)
  Sender: FDA-Public Use
  Company Number: CO-PFIZER INC-PV202200115436

PATIENT
  Age: 53 Year
  Sex: Female

DRUGS (2)
  1. ENBREL [Suspect]
     Active Substance: ETANERCEPT
     Indication: Rheumatoid arthritis
     Dosage: 50 MILLIGRAM, QWK
     Route: 058
     Dates: start: 2009, end: 202207
  2. ENBREL [Suspect]
     Active Substance: ETANERCEPT
     Dosage: 50 MILLIGRAM, QWK
     Route: 058
     Dates: end: 202106

REACTIONS (14)
  - Depression [Unknown]
  - Osteopenia [Not Recovered/Not Resolved]
  - Gait disturbance [Not Recovered/Not Resolved]
  - General physical health deterioration [Unknown]
  - Language disorder [Unknown]
  - Injection site haemorrhage [Unknown]
  - Illness [Unknown]
  - Hypokinesia [Unknown]
  - Arthritis [Unknown]
  - Tooth loss [Unknown]
  - Product dose omission issue [Unknown]
  - Product dispensing issue [Unknown]
  - Wrong technique in device usage process [Unknown]
  - Joint injury [Unknown]

NARRATIVE: CASE EVENT DATE: 20160101
